FAERS Safety Report 24653330 (Version 1)
Quarter: 2024Q4

REPORT INFORMATION
  Report Type: Spontaneous
  Country: CL (occurrence: CL)
  Receive Date: 20241122
  Receipt Date: 20241122
  Transmission Date: 20250115
  Serious: Yes (Other)
  Sender: TEVA
  Company Number: CL-TEVA-VS-3265449

PATIENT

DRUGS (1)
  1. CLOBAZAM [Suspect]
     Active Substance: CLOBAZAM
     Indication: Product used for unknown indication
     Dosage: SERIAL NUMBER: EXIC, GRIFOCLOBAM
     Route: 065

REACTIONS (1)
  - Status epilepticus [Unknown]
